FAERS Safety Report 11982238 (Version 2)
Quarter: 2016Q1

REPORT INFORMATION
  Report Type: Spontaneous
  Country: BR (occurrence: BR)
  Receive Date: 20160201
  Receipt Date: 20160211
  Transmission Date: 20160526
  Serious: Yes (Other)
  Sender: FDA-Public Use
  Company Number: BR-AMGEN-BRASP2016008410

PATIENT
  Age: 77 Year
  Sex: Female
  Weight: 63 kg

DRUGS (7)
  1. ERYTHROPOIETIN HUMAN [Concomitant]
     Indication: RED BLOOD CELL COUNT DECREASED
     Dosage: UNK UNK, QWK
  2. PROPOLIS [Concomitant]
     Active Substance: PROPOLIS WAX
  3. GRANULOKINE [Suspect]
     Active Substance: FILGRASTIM
     Indication: NEUTROPENIA
     Dosage: 30 UM/ML, 2 TIMES/WK
     Route: 065
     Dates: start: 201506, end: 20160108
  4. VITAMIN D                          /00107901/ [Concomitant]
     Active Substance: ERGOCALCIFEROL
     Dosage: UNK
  5. OMEGA 3                            /01333901/ [Concomitant]
     Active Substance: FISH OIL\TOCOPHEROL
     Dosage: UNK
  6. BENICAR [Concomitant]
     Active Substance: OLMESARTAN MEDOXOMIL
     Indication: CARDIAC DISORDER
     Dosage: UNK
  7. PYRIDOXINE [Concomitant]
     Active Substance: PYRIDOXINE
     Dosage: 300 MG, UNK

REACTIONS (4)
  - Pruritus [Unknown]
  - Platelet count decreased [Not Recovered/Not Resolved]
  - Transfusion [Unknown]
  - Malaise [Unknown]

NARRATIVE: CASE EVENT DATE: 20151221
